FAERS Safety Report 8293488-X (Version None)
Quarter: 2012Q2

REPORT INFORMATION
  Report Type: 
  Country: None (occurrence: None)
  Receive Date: 20120417
  Receipt Date: 20120406
  Transmission Date: 20120825
  Serious: Yes (Other)
  Sender: FDA-Public Use
  Company Number: US-ELI_LILLY_AND_COMPANY-US201204002108

PATIENT
  Sex: Female
  Weight: 158.73 kg

DRUGS (4)
  1. OXYGEN [Concomitant]
     Dosage: 6 L, OTHER
     Route: 055
  2. ADCIRCA [Suspect]
     Indication: PULMONARY HYPERTENSION
     Dosage: 20 MG, BID
  3. LEVOTHYROXINE SODIUM [Concomitant]
     Indication: HYPOTHYROIDISM
     Dosage: 200 UG, QD
  4. OXYGEN [Concomitant]
     Indication: PULMONARY ARTERIAL HYPERTENSION
     Dosage: 4 L, OTHER
     Route: 055

REACTIONS (4)
  - CARDIAC FAILURE CONGESTIVE [None]
  - GAIT DISTURBANCE [None]
  - RENAL FAILURE [None]
  - DIABETES MELLITUS [None]
